FAERS Safety Report 20895727 (Version 3)
Quarter: 2024Q2

REPORT INFORMATION
  Report Type: Report from Study
  Country: JP (occurrence: JP)
  Receive Date: 20220531
  Receipt Date: 20240527
  Transmission Date: 20240716
  Serious: Yes (Hospitalization)
  Sender: FDA-Public Use
  Company Number: JP-GILEAD-2020-0468865

PATIENT
  Age: 3 Decade
  Sex: Male

DRUGS (1)
  1. BICTEGRAVIR\EMTRICITABINE\TENOFOVIR ALAFENAMIDE [Suspect]
     Active Substance: BICTEGRAVIR\EMTRICITABINE\TENOFOVIR ALAFENAMIDE
     Indication: HIV infection
     Dosage: 1 DOSAGE FORM, QD
     Route: 048
     Dates: start: 20190413

REACTIONS (4)
  - Tonsillitis [Recovering/Resolving]
  - Anogenital warts [Recovering/Resolving]
  - Low density lipoprotein increased [Not Recovered/Not Resolved]
  - Seasonal allergy [Not Recovered/Not Resolved]

NARRATIVE: CASE EVENT DATE: 20190928
